FAERS Safety Report 7070059-4 (Version None)
Quarter: 2010Q4

REPORT INFORMATION
  Report Type: 
  Country: None (occurrence: None)
  Receive Date: 20101028
  Receipt Date: 20100805
  Transmission Date: 20110411
  Serious: No
  Sender: FDA-Public Use
  Company Number: US-WYE-H16789210

PATIENT
  Sex: Female
  Weight: 72.64 kg

DRUGS (9)
  1. ADVIL [Suspect]
     Indication: HEADACHE
     Dosage: UNKNOWN
     Route: 048
  2. TOPAMAX [Suspect]
     Indication: HEADACHE
     Dosage: UNKNOWN
     Route: 048
  3. CYMBALTA [Suspect]
     Indication: HEADACHE
     Dosage: UNKNOWN
     Route: 048
  4. NORTRIPTYLINE [Concomitant]
  5. FIORICET [Suspect]
     Indication: HEADACHE
     Dosage: UNKNOWN
     Route: 048
  6. RELPAX [Suspect]
     Indication: MIGRAINE
     Dosage: 40 MG AS NEEDED
     Route: 048
  7. ATENOLOL [Concomitant]
  8. BOTOX [Suspect]
     Indication: HEADACHE
     Dosage: UNKNOWN
     Route: 065
     Dates: start: 20100401
  9. PAXIL [Suspect]
     Indication: HEADACHE
     Dosage: UNKNOWN
     Route: 048

REACTIONS (2)
  - DRUG INEFFECTIVE [None]
  - OSTEOPOROSIS [None]
